FAERS Safety Report 7015175-8 (Version None)
Quarter: 2010Q3

REPORT INFORMATION
  Report Type: 
  Country: None (occurrence: None)
  Receive Date: 20100927
  Receipt Date: 20100225
  Transmission Date: 20110219
  Serious: No
  Sender: FDA-Public Use
  Company Number: US-ASTRAZENECA-2010SE08319

PATIENT
  Sex: Female
  Weight: 55.8 kg

DRUGS (4)
  1. ARIMIDEX [Suspect]
     Indication: BREAST CANCER
     Route: 048
     Dates: start: 20070101
  2. SYNTHROID [Concomitant]
     Indication: HYPOTHYROIDISM
  3. MULTIVIT [Concomitant]
  4. FINACEA [Concomitant]
     Indication: ROSACEA

REACTIONS (2)
  - SUPRAVENTRICULAR EXTRASYSTOLES [None]
  - VENTRICULAR EXTRASYSTOLES [None]
